FAERS Safety Report 7142436-4 (Version None)
Quarter: 2010Q4

REPORT INFORMATION
  Report Type: 
  Country: None (occurrence: None)
  Receive Date: 20101207
  Receipt Date: 20101201
  Transmission Date: 20110411
  Serious: Yes (Other)
  Sender: FDA-Public Use
  Company Number: US-PFIZER INC-2010130826

PATIENT
  Sex: Female
  Weight: 78.912 kg

DRUGS (2)
  1. CELEBREX [Suspect]
     Indication: ARTHRITIS
     Dosage: 200 MG, 1X/DAY
     Route: 048
     Dates: start: 20040101, end: 20050101
  2. CELEBREX [Suspect]
     Indication: PAIN

REACTIONS (1)
  - MYOCARDIAL INFARCTION [None]
